FAERS Safety Report 5716812-8 (Version None)
Quarter: 2008Q2

REPORT INFORMATION
  Report Type: 
  Country: None (occurrence: None)
  Receive Date: 20080424
  Receipt Date: 20070724
  Transmission Date: 20081010
  Serious: No
  Sender: FDA-Public Use
  Company Number: US-BAYER-200712417BWH

PATIENT
  Age: 53 Year
  Sex: Male

DRUGS (21)
  1. LEVITRA [Suspect]
     Indication: ERECTILE DYSFUNCTION
     Dosage: TOTAL DAILY DOSE: 5  MG  UNIT DOSE: 10 MG
     Route: 048
     Dates: start: 20070718, end: 20070718
  2. VITAMINS [Concomitant]
  3. TOPROL-XL [Concomitant]
  4. GLUCOVANCE [Concomitant]
  5. ZETIA [Concomitant]
  6. PLAVIX [Concomitant]
  7. ALPHA LIPOIC ACID [Concomitant]
  8. B6 [Concomitant]
  9. VITAMIN B-12 [Concomitant]
  10. SIESTA [Concomitant]
  11. ESTER C [Concomitant]
  12. GLUCOSAMINE [Concomitant]
  13. CHLORADITIN [Concomitant]
  14. CHROMIUM PICOLINATE [Concomitant]
  15. COQ10 [Concomitant]
  16. CORAL CALCIUM [Concomitant]
  17. DMAE [Concomitant]
  18. FLAXSEED OIL [Concomitant]
  19. FOLIC ACID [Concomitant]
  20. OMEGA 3 [Concomitant]
  21. IMDUR [Concomitant]

REACTIONS (3)
  - DIZZINESS [None]
  - ERECTILE DYSFUNCTION [None]
  - FLUSHING [None]
